FAERS Safety Report 5343260-5 (Version None)
Quarter: 2007Q2

REPORT INFORMATION
  Report Type: 
  Country: None (occurrence: None)
  Receive Date: 20070502
  Receipt Date: 20061211
  Transmission Date: 20071010
  Serious: Yes (Other)
  Sender: FDA-Public Use
  Company Number: PHEH2006US15129

PATIENT
  Age: 74 Year
  Sex: Female

DRUGS (3)
  1. LOTREL [Suspect]
     Indication: HYPERTENSION
     Dosage: 5/20 MG, QD, ORAL
     Route: 048
     Dates: start: 20061208, end: 20061211
  2. DIOVAN [Concomitant]
  3. DIAZEPAM [Concomitant]

REACTIONS (3)
  - BLOOD PRESSURE INADEQUATELY CONTROLLED [None]
  - RASH [None]
  - THROAT TIGHTNESS [None]
